FAERS Safety Report 10681215 (Version 1)
Quarter: 2014Q4

REPORT INFORMATION
  Report Type: Spontaneous
  Country: ES (occurrence: ES)
  Receive Date: 20141230
  Receipt Date: 20141230
  Transmission Date: 20150529
  Serious: Yes (Other)
  Sender: FDA-Public Use
  Company Number: PHHY2014ES166345

PATIENT
  Age: 60 Year
  Sex: Male

DRUGS (2)
  1. ZOLEDRONATE [Suspect]
     Active Substance: ZOLEDRONIC ACID
     Indication: PROSTATE CANCER METASTATIC
     Route: 065
  2. ABIRATERONE [Suspect]
     Active Substance: ABIRATERONE
     Indication: METASTASES TO BONE
     Route: 065

REACTIONS (4)
  - Rash erythematous [Unknown]
  - Malignant neoplasm progression [Unknown]
  - Prostate cancer metastatic [Unknown]
  - Eosinophilic cellulitis [Unknown]
